FAERS Safety Report 7483351-6 (Version None)
Quarter: 2011Q2

REPORT INFORMATION
  Report Type: 
  Country: None (occurrence: None)
  Receive Date: 20110517
  Receipt Date: 20110328
  Transmission Date: 20111010
  Serious: Yes (Hospitalization)
  Sender: FDA-Public Use
  Company Number: US-BAYER-201039127NA

PATIENT
  Sex: Female
  Weight: 160.54 kg

DRUGS (21)
  1. LISINOPRIL [Concomitant]
     Dosage: UNK
     Dates: start: 20060101
  2. METFORMIN HCL [Concomitant]
     Indication: DIABETES MELLITUS
     Dosage: UNK
     Dates: start: 20080901
  3. NOVOLOG [Concomitant]
     Dosage: 30 U, BID
  4. DILAUDID [Concomitant]
  5. BUMAN [Concomitant]
  6. LORTAB [Concomitant]
     Indication: PAIN
  7. BUMEX [Concomitant]
  8. ANTIHYPERTENSIVES [Concomitant]
     Dosage: UNK
  9. REGLAN [Concomitant]
     Dosage: 5 MG, TID
  10. LASIX [Concomitant]
  11. ASPIRIN [Concomitant]
  12. MOTRIN [Concomitant]
     Dosage: UNK
     Dates: start: 20070101, end: 20080101
  13. FLUCONAZOLE [Concomitant]
     Dosage: 100 MG, QD
  14. PHENERGAN [Concomitant]
     Indication: NAUSEA
     Dosage: 25 MG, PRN
  15. YAZ [Suspect]
     Indication: PRODUCT USED FOR UNKNOWN INDICATION
     Route: 048
  16. GLIPIZIDE [Concomitant]
     Dosage: 2.5 MG, BID
  17. MULTI-VITAMIN [Concomitant]
     Dosage: UNK UNK, QD
  18. GLUCOPHAGE [Concomitant]
  19. FUROSEMIDE [Concomitant]
     Dosage: UNK
     Dates: start: 20080101
  20. ACETAMINOPHEN [Concomitant]
  21. IBUPROFEN (ADVIL) [Concomitant]
     Dosage: UNK UNK, PRN

REACTIONS (15)
  - DIABETIC KETOACIDOSIS [None]
  - MEMORY IMPAIRMENT [None]
  - PAIN [None]
  - DIABETES MELLITUS [None]
  - APPENDICITIS PERFORATED [None]
  - MUCOSAL ULCERATION [None]
  - SUBCUTANEOUS ABSCESS [None]
  - CHOLECYSTITIS ACUTE [None]
  - GALLBLADDER NON-FUNCTIONING [None]
  - TYPE 2 DIABETES MELLITUS [None]
  - CONSTIPATION [None]
  - URINARY TRACT INFECTION [None]
  - CHOLELITHIASIS [None]
  - CHOLECYSTITIS CHRONIC [None]
  - AMENORRHOEA [None]
